FAERS Safety Report 4394976-9 (Version None)
Quarter: 2004Q3

REPORT INFORMATION
  Report Type: 
  Country: None (occurrence: None)
  Receive Date: 20040706
  Receipt Date: 20040625
  Transmission Date: 20050211
  Serious: Yes (Hospitalization)
  Sender: FDA-Public Use
  Company Number: 2003PK01900

PATIENT
  Age: 40 Year
  Sex: Male
  Weight: 74 kg

DRUGS (2)
  1. IRESSA [Suspect]
     Indication: CARCINOMA
     Dates: start: 20030703, end: 20030823
  2. GEMZAR [Suspect]
     Indication: CARCINOMA
     Dosage: 2000 MG DAILY IV
     Route: 042
     Dates: start: 20030616, end: 20030806

REACTIONS (9)
  - DYSPNOEA [None]
  - GENERAL PHYSICAL HEALTH DETERIORATION [None]
  - INTERSTITIAL LUNG DISEASE [None]
  - LYMPHANGIOSIS CARCINOMATOSA [None]
  - METASTASES TO LIVER [None]
  - METASTASES TO LUNG [None]
  - METASTASES TO LYMPH NODES [None]
  - OXYGEN SATURATION DECREASED [None]
  - RESPIRATORY FAILURE [None]
